FAERS Safety Report 5049772-6 (Version None)
Quarter: 2006Q3

REPORT INFORMATION
  Report Type: 
  Country: None (occurrence: None)
  Receive Date: 20060706
  Receipt Date: 20060624
  Transmission Date: 20061208
  Serious: Yes (Hospitalization)
  Sender: FDA-Public Use
  Company Number: 2006PV016415

PATIENT
  Age: 85 Year
  Sex: Female
  Weight: 94.3482 kg

DRUGS (3)
  1. BYETTA [Suspect]
     Indication: DIABETES MELLITUS NON-INSULIN-DEPENDENT
     Dosage: 5 MCG; BID; SC
     Route: 058
     Dates: end: 20060622
  2. CORTISONE [Suspect]
     Indication: ARTHRITIS
     Dosage: X1
     Dates: start: 20060614, end: 20060614
  3. CORTISONE [Suspect]
     Indication: ARTHRITIS
     Dosage: X1
     Dates: start: 20060621, end: 20060621

REACTIONS (5)
  - DEHYDRATION [None]
  - DIZZINESS [None]
  - FEELING ABNORMAL [None]
  - HYPERGLYCAEMIA [None]
  - WEIGHT DECREASED [None]
